FAERS Safety Report 5313196-4 (Version None)
Quarter: 2007Q2

REPORT INFORMATION
  Report Type: 
  Country: None (occurrence: None)
  Receive Date: 20070424
  Receipt Date: 20070412
  Transmission Date: 20071010
  Serious: Yes (Life-Threatening)
  Sender: FDA-Public Use
  Company Number: 16329

PATIENT
  Age: 50 Year
  Sex: Female
  Weight: 50 kg

DRUGS (4)
  1. VINORELBINE [Suspect]
     Dosage: 46 MG  IV
     Route: 042
     Dates: start: 20070214
  2. HERCEPTIN [Suspect]
     Indication: BREAST CANCER METASTATIC
     Dosage: 661.5 MG PER_CYCLE IV
     Route: 042
     Dates: start: 20070214, end: 20070220
  3. BRICANYL [Concomitant]
  4. TAMOXIFEN CITRATE [Concomitant]

REACTIONS (8)
  - ABDOMINAL PAIN UPPER [None]
  - DIZZINESS [None]
  - EYE SWELLING [None]
  - HYPOTENSION [None]
  - NAUSEA [None]
  - PYREXIA [None]
  - SKIN TIGHTNESS [None]
  - VOMITING [None]
